FAERS Safety Report 9165600 (Version 2)
Quarter: 2013Q2

REPORT INFORMATION
  Report Type: Spontaneous
  Country: US (occurrence: None)
  Receive Date: 20130227
  Receipt Date: 20130513
  Transmission Date: 20140414
  Serious: Yes (Other)
  Sender: FDA-Public Use
  Company Number: CRC-13-133

PATIENT
  Age: 72 Year
  Sex: Female
  Weight: 81.4 kg

DRUGS (1)
  1. VECURONIUM BROMIDE [Suspect]
     Indication: SURGERY
     Dates: start: 20130117

REACTIONS (1)
  - Drug ineffective [None]
